FAERS Safety Report 16799166 (Version 3)
Quarter: 2020Q1

REPORT INFORMATION
  Report Type: Spontaneous
  Country: US (occurrence: US)
  Receive Date: 20190912
  Receipt Date: 20200218
  Transmission Date: 20200409
  Serious: No
  Sender: FDA-Public Use
  Company Number: US-PFIZER INC-2019394649

PATIENT
  Age: 57 Year
  Sex: Female

DRUGS (1)
  1. XELJANZ XR [Suspect]
     Active Substance: TOFACITINIB CITRATE
     Dosage: 11 MG, DAILY (TAKE 1 TABLET BY MOUTH EVERYDAY)
     Route: 048
     Dates: start: 20190803

REACTIONS (2)
  - Hepatic enzyme increased [Unknown]
  - Sinus disorder [Unknown]

NARRATIVE: CASE EVENT DATE: 2019
